FAERS Safety Report 23911372 (Version 3)
Quarter: 2025Q1

REPORT INFORMATION
  Report Type: Report from Study
  Country: CN (occurrence: CN)
  Receive Date: 20240528
  Receipt Date: 20250122
  Transmission Date: 20250409
  Serious: Yes (Other)
  Sender: ROCHE
  Company Number: CN-ROCHE-3474101

PATIENT
  Age: 74 Year
  Sex: Female
  Weight: 68 kg

DRUGS (25)
  1. POLATUZUMAB VEDOTIN [Suspect]
     Active Substance: POLATUZUMAB VEDOTIN
     Indication: Diffuse large B-cell lymphoma
     Route: 048
     Dates: start: 20231101, end: 20231101
  2. RITUXIMAB [Suspect]
     Active Substance: RITUXIMAB
     Indication: Diffuse large B-cell lymphoma
     Route: 065
     Dates: end: 20231122
  3. RITUXIMAB [Suspect]
     Active Substance: RITUXIMAB
     Route: 065
     Dates: start: 20231031, end: 20231031
  4. CYCLOPHOSPHAMIDE [Suspect]
     Active Substance: CYCLOPHOSPHAMIDE
     Indication: Diffuse large B-cell lymphoma
     Route: 065
     Dates: start: 20231101, end: 20231103
  5. ETOPOSIDE [Suspect]
     Active Substance: ETOPOSIDE
     Indication: Diffuse large B-cell lymphoma
     Route: 065
     Dates: start: 20231101, end: 20231103
  6. PREDNISONE [Suspect]
     Active Substance: PREDNISONE
     Indication: Diffuse large B-cell lymphoma
     Route: 065
     Dates: start: 20231101, end: 20231105
  7. PANTOPRAZOLE SODIUM [Concomitant]
     Active Substance: PANTOPRAZOLE SODIUM
     Route: 042
     Dates: start: 20231030, end: 20231103
  8. VITAMIN B6 [Concomitant]
     Active Substance: PYRIDOXINE HYDROCHLORIDE
     Route: 042
     Dates: start: 20231030, end: 20231103
  9. SODIUM BICARBONATE [Concomitant]
     Active Substance: SODIUM BICARBONATE
     Route: 042
     Dates: start: 20231030, end: 20231103
  10. Granisetron Inj G [Concomitant]
     Route: 042
     Dates: start: 20231101, end: 20231103
  11. Acetaminophen tramadol tablet H [Concomitant]
     Route: 048
     Dates: start: 20231024, end: 20231024
  12. Fosfomycin aminotriol Powder G2 [Concomitant]
     Route: 048
     Dates: start: 20231024, end: 20231024
  13. Promethazine inj G [Concomitant]
     Route: 030
     Dates: start: 20231031, end: 20231101
  14. Febuxostat tablets G2 [Concomitant]
     Route: 048
     Dates: start: 20231031, end: 20231031
  15. Profol tenofovir tablets [Concomitant]
     Route: 048
     Dates: start: 20231031, end: 20231031
  16. Acetaminophen sustained-release tablets [Concomitant]
     Route: 048
     Dates: start: 20231101, end: 20231101
  17. MESNA [Concomitant]
     Active Substance: MESNA
     Route: 042
     Dates: start: 20231101, end: 20231101
  18. Pantoprazole sodium G3 for injection [Concomitant]
     Route: 042
     Dates: start: 20231121, end: 20231127
  19. Magnesium isoglycyrrhizinate inj G [Concomitant]
     Route: 042
     Dates: start: 20231121, end: 20231127
  20. Vitamin B6 inj G [Concomitant]
     Route: 042
     Dates: start: 20231121, end: 20231127
  21. Sodium bicarbonate injection G4 [Concomitant]
     Route: 042
     Dates: start: 20231121, end: 20231127
  22. Granisetron Inj G [Concomitant]
     Route: 042
     Dates: start: 20231123, end: 20231125
  23. Chlorhexidine gargle compound [Concomitant]
     Route: 048
     Dates: start: 20231119, end: 20231119
  24. Omeprazole enteric-coated capsules [Concomitant]
     Route: 048
     Dates: start: 20231120, end: 20231120
  25. CALCIUM GLUCONATE [Concomitant]
     Active Substance: CALCIUM GLUCONATE
     Route: 042
     Dates: start: 20231122, end: 20231122

REACTIONS (9)
  - Ventricular extrasystoles [Recovered/Resolved]
  - Neutrophil count decreased [Recovered/Resolved]
  - Lymphocyte count decreased [Recovered/Resolved]
  - Anaemia [Not Recovered/Not Resolved]
  - White blood cell count decreased [Recovered/Resolved]
  - Serum ferritin increased [Not Recovered/Not Resolved]
  - Hyperuricaemia [Not Recovered/Not Resolved]
  - Hypokalaemia [Recovered/Resolved]
  - Hyperlipidaemia [Not Recovered/Not Resolved]

NARRATIVE: CASE EVENT DATE: 20231102
